FAERS Safety Report 9564125 (Version 1)
Quarter: 2013Q3

REPORT INFORMATION
  Report Type: Spontaneous
  Country: US (occurrence: US)
  Receive Date: 20130930
  Receipt Date: 20130930
  Transmission Date: 20140515
  Serious: No
  Sender: FDA-Public Use
  Company Number: US-009507513-1309USA013268

PATIENT
  Age: 52 Year
  Sex: Female

DRUGS (3)
  1. NASONEX [Suspect]
     Indication: RHINORRHOEA
     Dosage: 50MCG/2 SPRAYS
     Route: 045
     Dates: start: 20130920
  2. NASONEX [Suspect]
     Indication: HEADACHE
  3. NASONEX [Suspect]
     Indication: EAR DISORDER

REACTIONS (4)
  - Anxiety [Unknown]
  - Nasal discomfort [Unknown]
  - Eye disorder [Unknown]
  - Poor quality sleep [Unknown]
